FAERS Safety Report 14573265 (Version 5)
Quarter: 2018Q3

REPORT INFORMATION
  Report Type: Report from Study
  Country: IT (occurrence: IT)
  Receive Date: 20180226
  Receipt Date: 20180910
  Transmission Date: 20181010
  Serious: Yes (Hospitalization)
  Sender: FDA-Public Use
  Company Number: IT-GILEAD-2018-0322134

PATIENT
  Age: 75 Year
  Sex: Male
  Weight: 77 kg

DRUGS (23)
  1. ALLOPURINOL. [Concomitant]
     Active Substance: ALLOPURINOL
     Route: 048
  2. ACICLOVIR [Concomitant]
     Active Substance: ACYCLOVIR
     Route: 048
  3. COTRIMOXAZOLE [Concomitant]
     Active Substance: SULFAMETHOXAZOLE\TRIMETHOPRIM
     Dosage: UNK
  4. ALLOPURINOL. [Concomitant]
     Active Substance: ALLOPURINOL
     Route: 048
  5. ALLOPURINOL. [Concomitant]
     Active Substance: ALLOPURINOL
     Route: 048
  6. LAMIVUDINE. [Concomitant]
     Active Substance: LAMIVUDINE
     Dosage: UNK
  7. ALLOPURINOL. [Concomitant]
     Active Substance: ALLOPURINOL
  8. ACICLOVIR [Concomitant]
     Active Substance: ACYCLOVIR
     Route: 048
  9. ACICLOVIR [Concomitant]
     Active Substance: ACYCLOVIR
  10. IDELALISIB [Suspect]
     Active Substance: IDELALISIB
     Indication: B-CELL LYMPHOMA
     Dosage: 300 MG, QD
     Route: 048
     Dates: start: 20171107, end: 20180212
  11. ALLOPURINOL. [Concomitant]
     Active Substance: ALLOPURINOL
     Dosage: UNK
  12. COTRIMOXAZOLE [Concomitant]
     Active Substance: SULFAMETHOXAZOLE\TRIMETHOPRIM
  13. LAMIVUDINE. [Concomitant]
     Active Substance: LAMIVUDINE
  14. ALLOPURINOL. [Concomitant]
     Active Substance: ALLOPURINOL
  15. ALLOPURINOL. [Concomitant]
     Active Substance: ALLOPURINOL
  16. ACICLOVIR [Concomitant]
     Active Substance: ACYCLOVIR
     Dosage: UNK
  17. ACICLOVIR [Concomitant]
     Active Substance: ACYCLOVIR
  18. LAMIVUDINE. [Concomitant]
     Active Substance: LAMIVUDINE
  19. ACICLOVIR [Concomitant]
     Active Substance: ACYCLOVIR
  20. ACICLOVIR [Concomitant]
     Active Substance: ACYCLOVIR
     Route: 048
  21. COTRIMOXAZOLE [Concomitant]
     Active Substance: SULFAMETHOXAZOLE\TRIMETHOPRIM
  22. COTRIMOXAZOLE [Concomitant]
     Active Substance: SULFAMETHOXAZOLE\TRIMETHOPRIM
  23. LAMIVUDINE. [Concomitant]
     Active Substance: LAMIVUDINE

REACTIONS (5)
  - Dyspepsia [Not Recovered/Not Resolved]
  - Diarrhoea [Not Recovered/Not Resolved]
  - Vomiting [Not Recovered/Not Resolved]
  - Hiccups [Not Recovered/Not Resolved]
  - Abdominal pain upper [Not Recovered/Not Resolved]

NARRATIVE: CASE EVENT DATE: 20180212
